FAERS Safety Report 25749212 (Version 1)
Quarter: 2025Q3

REPORT INFORMATION
  Report Type: Spontaneous
  Country: US (occurrence: US)
  Receive Date: 20250902
  Receipt Date: 20250902
  Transmission Date: 20251020
  Serious: No
  Sender: SANOFI AVENTIS
  Company Number: US-SA-2025SA261748

PATIENT
  Sex: Male
  Weight: 52.1 kg

DRUGS (4)
  1. DUPIXENT [Suspect]
     Active Substance: DUPILUMAB
     Indication: Dermatitis atopic
     Dosage: 300 MG, QOW
     Route: 058
  2. ALLEGRA ALLERGY [Concomitant]
     Active Substance: FEXOFENADINE HYDROCHLORIDE
  3. TRIAMCINOLONE ACETONIDE [Concomitant]
     Active Substance: TRIAMCINOLONE ACETONIDE
  4. RINVOQ [Concomitant]
     Active Substance: UPADACITINIB

REACTIONS (8)
  - Fatigue [Unknown]
  - Influenza like illness [Unknown]
  - Joint swelling [Unknown]
  - Alopecia [Unknown]
  - Skin mass [Unknown]
  - Urine output decreased [Unknown]
  - Dermatitis [Unknown]
  - Eczema [Unknown]
